FAERS Safety Report 5526837-3 (Version None)
Quarter: 2007Q4

REPORT INFORMATION
  Report Type: 
  Country: None (occurrence: None)
  Receive Date: 20071127
  Receipt Date: 20071115
  Transmission Date: 20080405
  Serious: Yes (Other)
  Sender: FDA-Public Use
  Company Number: GB-PFIZER INC-2007097061

PATIENT
  Sex: Female
  Weight: 89 kg

DRUGS (6)
  1. LYRICA [Suspect]
     Indication: NEURALGIA
     Route: 048
     Dates: start: 20070927, end: 20071015
  2. IPRATROPIUM BROMIDE [Concomitant]
     Indication: ASTHMA
     Route: 055
  3. LEVOTHYROXINE SODIUM [Concomitant]
     Indication: HYPOTHYROIDISM
     Route: 048
  4. MOMETASONE FUROATE [Concomitant]
     Indication: NASAL CONGESTION
     Route: 045
  5. SERETIDE [Concomitant]
     Indication: ASTHMA
     Route: 055
  6. TRAMADOL HCL [Concomitant]
     Indication: PAIN
     Route: 048

REACTIONS (4)
  - DEPRESSION [None]
  - FACIAL PAIN [None]
  - NECK PAIN [None]
  - PAIN [None]
